FAERS Safety Report 17287210 (Version 6)
Quarter: 2021Q1

REPORT INFORMATION
  Report Type: Other
  Country: US (occurrence: US)
  Receive Date: 20200120
  Receipt Date: 20210204
  Transmission Date: 20210419
  Serious: Yes (Other)
  Sender: FDA-Public Use
  Company Number: US-ROCHE-2520526

PATIENT
  Sex: Female
  Weight: 65.38 kg

DRUGS (14)
  1. METHENAMINE [Concomitant]
     Active Substance: METHENAMINE
     Route: 048
     Dates: start: 201904
  2. CELEBREX [Concomitant]
     Active Substance: CELECOXIB
     Indication: OSTEOARTHRITIS
     Route: 048
  3. MODAFINIL. [Concomitant]
     Active Substance: MODAFINIL
     Dosage: AS NEEDED
     Route: 048
  4. POTASSIUM CITRATE. [Concomitant]
     Active Substance: POTASSIUM CITRATE
     Route: 048
     Dates: start: 201904
  5. OXYBUTYNIN. [Concomitant]
     Active Substance: OXYBUTYNIN CHLORIDE
     Indication: AUTOMATIC BLADDER
     Route: 048
  6. DIAZEPAM. [Suspect]
     Active Substance: DIAZEPAM
     Indication: MUSCLE SPASMS
     Dosage: AS NEEDED
     Route: 048
     Dates: start: 2017
  7. DIAZEPAM. [Suspect]
     Active Substance: DIAZEPAM
     Indication: MUSCLE SPASTICITY
  8. OCREVUS [Suspect]
     Active Substance: OCRELIZUMAB
     Route: 042
     Dates: start: 2017
  9. WELLBUTRIN [Concomitant]
     Active Substance: BUPROPION HYDROCHLORIDE
     Indication: MAJOR DEPRESSION
     Route: 048
  10. WELLBUTRIN [Concomitant]
     Active Substance: BUPROPION HYDROCHLORIDE
     Dosage: 150 MG, ACD, ONCE A DAY
     Route: 048
     Dates: start: 2019
  11. OCREVUS [Suspect]
     Active Substance: OCRELIZUMAB
     Indication: MULTIPLE SCLEROSIS
     Dosage: SUBSEQUENT DOSE: 600 MG, EVERY 6 MONTHS DATE OF TREATMENT: 23/AUG/2017, 04/MAY/2018 (600 MG), 19/JUN
     Route: 065
     Dates: start: 20170915
  12. OCREVUS [Suspect]
     Active Substance: OCRELIZUMAB
     Route: 065
     Dates: start: 20170823
  13. AMPYRA [Concomitant]
     Active Substance: DALFAMPRIDINE
     Dosage: EVERY 12 HOURS
     Route: 048
  14. LEVOTHYROXINE. [Concomitant]
     Active Substance: LEVOTHYROXINE
     Indication: HYPOTHYROIDISM
     Dates: start: 1972

REACTIONS (9)
  - Nephrolithiasis [Recovered/Resolved]
  - Chills [Unknown]
  - Body temperature increased [Unknown]
  - Cystitis [Recovered/Resolved]
  - Hypertension [Unknown]
  - Alopecia [Not Recovered/Not Resolved]
  - Urinary tract infection [Recovered/Resolved]
  - Muscle spasms [Not Recovered/Not Resolved]
  - Pyrexia [Unknown]

NARRATIVE: CASE EVENT DATE: 2019
